FAERS Safety Report 7098985-0 (Version None)
Quarter: 2010Q4

REPORT INFORMATION
  Report Type: 
  Country: None (occurrence: None)
  Receive Date: 20101112
  Receipt Date: 20101108
  Transmission Date: 20110411
  Serious: Yes (Other)
  Sender: FDA-Public Use
  Company Number: US-BAYER-201040407NA

PATIENT
  Sex: Female

DRUGS (2)
  1. MIRENA [Suspect]
     Indication: PRODUCT USED FOR UNKNOWN INDICATION
     Route: 015
     Dates: start: 20030101
  2. MIRENA [Suspect]
     Route: 015
     Dates: start: 20080101

REACTIONS (5)
  - CONVULSION [None]
  - IRRITABILITY [None]
  - LIBIDO DECREASED [None]
  - MIGRAINE [None]
  - PAIN [None]
